FAERS Safety Report 4728785-5 (Version None)
Quarter: 2005Q3

REPORT INFORMATION
  Report Type: 
  Country: None (occurrence: None)
  Receive Date: 20050721
  Receipt Date: 20050506
  Transmission Date: 20060218
  Serious: No
  Sender: FDA-Public Use
  Company Number: 2005SP000606

PATIENT
  Age: 79 Year
  Sex: Female
  Weight: 53.978 kg

DRUGS (1)
  1. LUNESTA [Suspect]
     Dosage: 2 MG; HS; ORAL
     Route: 048
     Dates: start: 20050505, end: 20050505

REACTIONS (3)
  - NAUSEA [None]
  - NIGHTMARE [None]
  - PAIN [None]
